FAERS Safety Report 8189341-2 (Version None)
Quarter: 2012Q1

REPORT INFORMATION
  Report Type: 
  Country: None (occurrence: None)
  Receive Date: 20120302
  Receipt Date: 20120228
  Transmission Date: 20120608
  Serious: Yes (Death)
  Sender: FDA-Public Use
  Company Number: 7112000

PATIENT
  Age: 66 Year
  Sex: Female

DRUGS (13)
  1. LEVOTHYROXINE SODIUM [Concomitant]
  2. METOPROLOL SUCCINATE [Concomitant]
  3. DIGITOXIN TAB [Concomitant]
  4. TORSEMIDE [Concomitant]
  5. LEVOTHYROXINE SODIUM [Suspect]
     Indication: SURGERY
     Dosage: 150 MCG (150 MCG,1 IN 1 D) ORAL, SINCE YEARS
     Route: 048
  6. RAMIPRIL [Concomitant]
  7. SYMBICORT [Concomitant]
  8. FALITHROM (PHENPROCOUMON) [Concomitant]
  9. NOVALGIN GUTTAE (METAMIZOLE SODIUM) [Concomitant]
  10. CARBAZEPIN (CARBAMAZEPINE) (CARBAMAZEPINE) [Concomitant]
  11. SPIRIVA [Concomitant]
  12. SPIRONOLACTONE [Concomitant]
  13. KALINOR RETARD (ALL OTHER THERAPEUTIC PRODUCTS) [Concomitant]

REACTIONS (3)
  - SCRATCH [None]
  - CARDIAC DISORDER [None]
  - RASH PRURITIC [None]
